FAERS Safety Report 7470566-6 (Version None)
Quarter: 2011Q2

REPORT INFORMATION
  Report Type: 
  Country: None (occurrence: None)
  Receive Date: 20110510
  Receipt Date: 20110422
  Transmission Date: 20111010
  Serious: No
  Sender: FDA-Public Use
  Company Number: US-B.I. PHARMACEUTICALS,INC./RIDGEFIELD-2011-BP-07028BP

PATIENT
  Sex: Male

DRUGS (8)
  1. SIMVASTATIN [Concomitant]
     Dosage: 80 MG
  2. TRANDOLOPRIL [Concomitant]
  3. MULTAQ [Concomitant]
     Dosage: 400 MG
  4. MALIC (GENERIC) [Concomitant]
  5. PRADAXA [Suspect]
     Indication: CEREBROVASCULAR ACCIDENT PROPHYLAXIS
  6. OMEPRAZOLE [Concomitant]
     Dosage: 20 MG
  7. FLOMAX [Concomitant]
  8. PRADAXA [Suspect]
     Indication: ATRIAL FIBRILLATION
     Dosage: 300 MG
     Route: 048
     Dates: start: 20110101

REACTIONS (3)
  - CONTUSION [None]
  - PAIN IN EXTREMITY [None]
  - DIARRHOEA [None]
